FAERS Safety Report 8261238-9 (Version None)
Quarter: 2012Q2

REPORT INFORMATION
  Report Type: 
  Country: None (occurrence: None)
  Receive Date: 20120405
  Receipt Date: 20120328
  Transmission Date: 20120825
  Serious: Yes (Other)
  Sender: FDA-Public Use
  Company Number: PHHY2011US26666

PATIENT
  Sex: Male

DRUGS (1)
  1. GLEEVEC [Suspect]
     Indication: NEOPLASM MALIGNANT
     Dosage: 400 MG, QD
     Route: 048
     Dates: start: 20110302

REACTIONS (8)
  - MUSCLE STRAIN [None]
  - FLUID RETENTION [None]
  - DYSPEPSIA [None]
  - ANXIETY [None]
  - NEPHROLITHIASIS [None]
  - STOMACH MASS [None]
  - NAUSEA [None]
  - BURNING SENSATION [None]
